FAERS Safety Report 11781259 (Version 4)
Quarter: 2016Q1

REPORT INFORMATION
  Report Type: Spontaneous
  Country: GB (occurrence: GB)
  Receive Date: 20151126
  Receipt Date: 20160208
  Transmission Date: 20160525
  Serious: Yes (Hospitalization, Other)
  Sender: FDA-Public Use
  Company Number: GB-009507513-1511GBR012947

PATIENT
  Age: 75 Year
  Sex: Female

DRUGS (3)
  1. IRON (UNSPECIFIED) [Suspect]
     Active Substance: IRON
     Dosage: UNK, PRN
     Route: 065
  2. ALENDRONATE SODIUM. [Suspect]
     Active Substance: ALENDRONATE SODIUM
     Indication: OSTEOPOROSIS PROPHYLAXIS
     Dosage: 10MG DAILY AT BREAKFAST;DAILY DOSE: 10MG; 70MG WEEKLY
     Route: 065
     Dates: start: 20150923
  3. ANASTROZOLE. [Suspect]
     Active Substance: ANASTROZOLE
     Dosage: 1 MILLIGRAM DAILY; AT BREAKFAST; DAILY DOSE: 1MILLIGRAM
     Route: 065

REACTIONS (8)
  - Myocardial infarction [Unknown]
  - Dizziness [Recovering/Resolving]
  - Chest discomfort [Recovering/Resolving]
  - Frequent bowel movements [Recovering/Resolving]
  - Chest crushing [Recovering/Resolving]
  - Faeces discoloured [Recovering/Resolving]
  - Chest pain [Recovering/Resolving]
  - Abnormal faeces [Recovering/Resolving]

NARRATIVE: CASE EVENT DATE: 20150923
